FAERS Safety Report 5997520-5 (Version None)
Quarter: 2008Q4

REPORT INFORMATION
  Report Type: 
  Country: None (occurrence: None)
  Receive Date: 20081212
  Receipt Date: 20081113
  Transmission Date: 20090506
  Serious: No
  Sender: FDA-Public Use
  Company Number: US-ABBOTT-08P-163-0487930-00

PATIENT
  Sex: Female
  Weight: 59.928 kg

DRUGS (14)
  1. HUMIRA [Suspect]
     Indication: ANKYLOSING SPONDYLITIS
     Route: 058
     Dates: start: 20080211
  2. VICODIN [Concomitant]
     Indication: PAIN
     Dosage: 5/325 MG
     Route: 048
  3. METHADONE HCL [Concomitant]
     Indication: PAIN
     Route: 048
  4. METHOCARBAMOL [Concomitant]
     Indication: MUSCLE RELAXANT THERAPY
     Route: 048
  5. OMEPRAZOLE SODIUM [Concomitant]
     Indication: GASTROOESOPHAGEAL REFLUX DISEASE
     Route: 048
  6. LIALDA [Concomitant]
     Indication: COLITIS ULCERATIVE
     Route: 048
  7. ACYCLOVIR SODIUM [Concomitant]
     Indication: HERPES VIRUS INFECTION
     Route: 061
  8. ACYCLOVIR SODIUM [Concomitant]
     Route: 048
  9. ZOLPIDEM TARTRATE [Concomitant]
     Indication: INSOMNIA
     Route: 048
  10. CONJUGATED ESTROGENS [Concomitant]
     Indication: DRUG USE FOR UNKNOWN INDICATION
     Route: 048
  11. LOTREL [Concomitant]
     Indication: HYPERTENSION
     Dosage: 10/40 MG
     Route: 048
  12. SELDENE [Concomitant]
     Indication: ARTHRITIS
     Route: 048
  13. FLUTICASONE PROPIONATE [Concomitant]
     Indication: BRONCHITIS
     Route: 048
  14. ROPINIROLE HYDROCHLORIDE [Concomitant]
     Indication: RESTLESS LEGS SYNDROME
     Route: 048

REACTIONS (1)
  - ACCIDENTAL NEEDLE STICK [None]
